FAERS Safety Report 5941355-6 (Version None)
Quarter: 2008Q4

REPORT INFORMATION
  Report Type: 
  Country: None (occurrence: None)
  Receive Date: 20081103
  Receipt Date: 20081016
  Transmission Date: 20090506
  Serious: Yes (Other)
  Sender: FDA-Public Use
  Company Number: AU-1167683

PATIENT
  Sex: Female

DRUGS (1)
  1. MAXIDEX FORTE DROPS [Suspect]
     Indication: CORNEAL TRANSPLANT
     Dosage: OPHTHALMIC
     Route: 047

REACTIONS (1)
  - ULCERATIVE KERATITIS [None]
